FAERS Safety Report 19865316 (Version 1)
Quarter: 2021Q3

REPORT INFORMATION
  Report Type: Spontaneous
  Country: US (occurrence: US)
  Receive Date: 20210921
  Receipt Date: 20210921
  Transmission Date: 20211014
  Serious: Yes (Other)
  Sender: FDA-Public Use
  Company Number: US-BAUSCH-BL-2021-031835

PATIENT
  Age: 66 Year
  Sex: Female

DRUGS (5)
  1. CEFEPIME [Concomitant]
     Active Substance: CEFEPIME HYDROCHLORIDE
     Indication: PREOPERATIVE CARE
  2. VANCOMYCIN [Concomitant]
     Active Substance: VANCOMYCIN
     Indication: PREOPERATIVE CARE
  3. BACITRACIN. [Concomitant]
     Active Substance: BACITRACIN
     Indication: PREOPERATIVE CARE
  4. HYDROCORTISONE. [Suspect]
     Active Substance: HYDROCORTISONE
     Indication: ADRENAL INSUFFICIENCY
     Route: 065
  5. SILVER SULFADIAZINE. [Concomitant]
     Active Substance: SILVER SULFADIAZINE
     Indication: PRODUCT USED FOR UNKNOWN INDICATION

REACTIONS (3)
  - Pseudomonas infection [Unknown]
  - CNS ventriculitis [Unknown]
  - Meningoencephalitis bacterial [Unknown]
